FAERS Safety Report 14701317 (Version 1)
Quarter: 2018Q1

REPORT INFORMATION
  Report Type: Spontaneous
  Country: US (occurrence: US)
  Receive Date: 20180328
  Receipt Date: 20180328
  Transmission Date: 20180509
  Serious: Yes (Hospitalization)
  Sender: FDA-Public Use
  Company Number: None

PATIENT
  Age: 69 Year
  Sex: Male

DRUGS (1)
  1. GLECAPREVIR/PIBRENTASVIR [Suspect]
     Active Substance: GLECAPREVIR\PIBRENTASVIR
     Indication: HEPATITIS C
     Route: 048
     Dates: start: 20180215, end: 20180312

REACTIONS (5)
  - Abdominal pain [None]
  - Nausea [None]
  - Diarrhoea [None]
  - Vomiting [None]
  - Intestinal obstruction [None]

NARRATIVE: CASE EVENT DATE: 20180312
